FAERS Safety Report 22030125 (Version 1)
Quarter: 2023Q1

REPORT INFORMATION
  Report Type: Spontaneous
  Country: US (occurrence: US)
  Receive Date: 20230223
  Receipt Date: 20230223
  Transmission Date: 20230418
  Serious: Yes (Hospitalization)
  Sender: FDA-Public Use
  Company Number: US-LANTHEUS-LMI-2022-00484

PATIENT
  Age: 28 Year
  Sex: Female

DRUGS (1)
  1. DEFINITY [Suspect]
     Active Substance: PERFLUTREN
     Indication: Echocardiogram
     Dosage: 0.52 MILLILITRE (UNKNOWN AMOUNT OF DEFINITY PREPARED IN 8 ML NORMAL SALINE)
     Route: 042
     Dates: start: 20220427, end: 20220427

REACTIONS (5)
  - Throat irritation [Recovered/Resolved]
  - Pharyngeal swelling [Recovered/Resolved]
  - Flushing [Recovered/Resolved]
  - Feeling hot [Recovered/Resolved]
  - Drug hypersensitivity [Recovered/Resolved]

NARRATIVE: CASE EVENT DATE: 20220427
